FAERS Safety Report 5066442-9 (Version None)
Quarter: 2006Q3

REPORT INFORMATION
  Report Type: 
  Country: None (occurrence: None)
  Receive Date: 20060801
  Receipt Date: 20060724
  Transmission Date: 20061208
  Serious: Yes (Disabling)
  Sender: FDA-Public Use
  Company Number: JP-AVENTIS-200617697GDDC

PATIENT
  Age: 56 Year
  Sex: Female

DRUGS (1)
  1. RIFADIN [Suspect]
     Route: 048
     Dates: start: 20050711, end: 20051001

REACTIONS (2)
  - GENERALISED OEDEMA [None]
  - HYPOTHYROIDISM [None]
